FAERS Safety Report 8447208-6 (Version None)
Quarter: 2012Q2

REPORT INFORMATION
  Report Type: 
  Country: None (occurrence: None)
  Receive Date: 20120619
  Receipt Date: 20120615
  Transmission Date: 20120825
  Serious: No
  Sender: FDA-Public Use
  Company Number: US-PFIZER INC-2012020364

PATIENT
  Sex: Female
  Weight: 80.73 kg

DRUGS (7)
  1. LASIX [Concomitant]
     Indication: LYMPHATIC DISORDER
     Dosage: 80MG(TWO 40MG) AM AND 40MG PM, 2X/DAY
  2. POTASSIUM CHLORIDE [Concomitant]
     Indication: LYMPHATIC DISORDER
     Dosage: 8 MEQ, DAILY
  3. PRILOSEC [Concomitant]
     Indication: HIATUS HERNIA
     Dosage: 20 MG, DAILY
  4. LYRICA [Suspect]
     Indication: FIBROMYALGIA
     Dosage: 75 MG, 2X/DAY
     Dates: start: 20120121
  5. SPIRONOLACTONE [Concomitant]
     Indication: LYMPHATIC DISORDER
     Dosage: 100 MG, DAILY ((2 TABLET IN THE MORNING)
  6. XANAX [Concomitant]
     Dosage: 0.5 MG, DAILY
  7. ZOCOR [Concomitant]
     Dosage: 80 MG, DAILY

REACTIONS (4)
  - FATIGUE [None]
  - FEELING ABNORMAL [None]
  - ANXIETY [None]
  - SOMNOLENCE [None]
